FAERS Safety Report 13635719 (Version 1)
Quarter: 2017Q2

REPORT INFORMATION
  Report Type: Spontaneous
  Country: US (occurrence: US)
  Receive Date: 20170609
  Receipt Date: 20170609
  Transmission Date: 20170830
  Serious: Yes (Death, Other)
  Sender: FDA-Public Use
  Company Number: US-ASTELLAS-2017US022616

PATIENT
  Age: 10 Year
  Sex: Male

DRUGS (1)
  1. TACROLIMUS. [Suspect]
     Active Substance: TACROLIMUS
     Indication: STEM CELL TRANSPLANT
     Dosage: UNK UNK, UNKNOWN FREQ.
     Route: 065

REACTIONS (8)
  - Mental impairment [Fatal]
  - Hepatic function abnormal [Fatal]
  - Respiratory disorder [Fatal]
  - Pulmonary haemorrhage [Unknown]
  - Thrombotic microangiopathy [Fatal]
  - Seizure [Fatal]
  - Pneumonia fungal [Fatal]
  - Off label use [Unknown]
